FAERS Safety Report 9722991 (Version 2)
Quarter: 2013Q4

REPORT INFORMATION
  Report Type: Spontaneous
  Country: BR (occurrence: BR)
  Receive Date: 20131202
  Receipt Date: 20131202
  Transmission Date: 20140711
  Serious: Yes (Death)
  Sender: FDA-Public Use
  Company Number: BR-PFIZER INC-2013203686

PATIENT
  Age: 67 Year
  Sex: Female
  Weight: 86 kg

DRUGS (1)
  1. SUTENT [Suspect]
     Indication: RENAL CELL CARCINOMA
     Dosage: 37.5 MG, CYCLIC (4X2)
     Route: 048
     Dates: start: 20130318

REACTIONS (5)
  - Death [Fatal]
  - Dysgeusia [Not Recovered/Not Resolved]
  - Sensitivity of teeth [Unknown]
  - Oral discomfort [Unknown]
  - Glossodynia [Unknown]
